FAERS Safety Report 5355872-3 (Version None)
Quarter: 2007Q2

REPORT INFORMATION
  Report Type: 
  Country: None (occurrence: None)
  Receive Date: 20070530
  Receipt Date: 20070314
  Transmission Date: 20071010
  Serious: Yes (Hospitalization)
  Sender: FDA-Public Use
  Company Number: US200609007449

PATIENT
  Age: 55 Year
  Sex: Female
  Weight: 66.2 kg

DRUGS (5)
  1. ZYPREXA [Suspect]
     Dosage: 25 MG
     Dates: start: 19960101
  2. WELLBUTRIN [Concomitant]
  3. LOPRESSOR [Concomitant]
  4. CARDIZEM [Concomitant]
  5. PEXEVA (PAROXETINE MESILATE) [Concomitant]

REACTIONS (8)
  - BLOOD TRIGLYCERIDES INCREASED [None]
  - DIABETES MELLITUS [None]
  - GLYCOSURIA [None]
  - HYPERGLYCAEMIA [None]
  - HYPERPHAGIA [None]
  - HYPERTENSION [None]
  - POLYDIPSIA [None]
  - PRESCRIBED OVERDOSE [None]
